FAERS Safety Report 13413091 (Version 2)
Quarter: 2017Q2

REPORT INFORMATION
  Report Type: Spontaneous
  Country: US (occurrence: US)
  Receive Date: 20170407
  Receipt Date: 20170425
  Transmission Date: 20170830
  Serious: Yes (Life-Threatening, Hospitalization, Other)
  Sender: FDA-Public Use
  Company Number: US-009507513-1703USA013646

PATIENT
  Age: 5 Day
  Sex: Male

DRUGS (2)
  1. NITRIC OXIDE. [Concomitant]
     Active Substance: NITRIC OXIDE
     Dosage: UNK
     Route: 055
  2. ZEMURON [Suspect]
     Active Substance: ROCURONIUM BROMIDE
     Indication: CATHETER PLACEMENT
     Dosage: UNK
     Route: 042
     Dates: start: 20170328, end: 20170328

REACTIONS (1)
  - Neonatal hypotension [Recovering/Resolving]

NARRATIVE: CASE EVENT DATE: 20170328
